FAERS Safety Report 6721042-7 (Version None)
Quarter: 2010Q2

REPORT INFORMATION
  Report Type: 
  Country: None (occurrence: None)
  Receive Date: 20100512
  Receipt Date: 20100506
  Transmission Date: 20101027
  Serious: Yes (Other)
  Sender: FDA-Public Use
  Company Number: US-BAYER-201021850NA

PATIENT
  Age: 33 Year
  Sex: Female

DRUGS (4)
  1. YAZ [Suspect]
     Indication: DRUG USE FOR UNKNOWN INDICATION
     Route: 048
     Dates: start: 20050801, end: 20051201
  2. YAZ [Suspect]
     Route: 048
     Dates: start: 20070301, end: 20070401
  3. YASMIN [Suspect]
     Indication: DRUG USE FOR UNKNOWN INDICATION
     Route: 048
     Dates: start: 20050801, end: 20051201
  4. YASMIN [Suspect]
     Route: 048
     Dates: start: 20070301, end: 20070401

REACTIONS (2)
  - CHOLECYSTECTOMY [None]
  - DEEP VEIN THROMBOSIS [None]
